FAERS Safety Report 6764490-1 (Version None)
Quarter: 2010Q2

REPORT INFORMATION
  Report Type: 
  Country: None (occurrence: None)
  Receive Date: 20100609
  Receipt Date: 20100421
  Transmission Date: 20101027
  Serious: No
  Sender: FDA-Public Use
  Company Number: 2010009591

PATIENT
  Age: 3 Year
  Sex: Male
  Weight: 19.5047 kg

DRUGS (2)
  1. CHILDREN'S ZYRTEC HIVES RELIEF [Suspect]
     Indication: HYPERSENSITIVITY
     Dosage: 1 TEASPOON ONCE, ORAL
     Route: 048
  2. AMOXICILLIN [Concomitant]

REACTIONS (2)
  - OFF LABEL USE [None]
  - WRONG DRUG ADMINISTERED [None]
